FAERS Safety Report 5700627-0 (Version None)
Quarter: 2008Q2

REPORT INFORMATION
  Report Type: 
  Country: None (occurrence: None)
  Receive Date: 20080409
  Receipt Date: 20080409
  Transmission Date: 20081010
  Serious: Yes (Life-Threatening)
  Sender: FDA-Public Use
  Company Number: None

PATIENT
  Sex: Male
  Weight: 54.4316 kg

DRUGS (4)
  1. ADVIL [Suspect]
     Indication: BACK PAIN
     Dosage: 2   NOT TO EXCEED 6 IN 24 HOURS
     Dates: start: 20080201, end: 20080301
  2. ADVIL [Suspect]
     Indication: MUSCULOSKELETAL STIFFNESS
     Dosage: 2   NOT TO EXCEED 6 IN 24 HOURS
     Dates: start: 20080201, end: 20080301
  3. ADVIL [Suspect]
     Indication: BACK PAIN
     Dosage: 2   NOT TO EXCEED 6 IN 24 HOURS
     Dates: start: 20080328, end: 20080406
  4. ADVIL [Suspect]
     Indication: MUSCULOSKELETAL STIFFNESS
     Dosage: 2   NOT TO EXCEED 6 IN 24 HOURS
     Dates: start: 20080328, end: 20080406

REACTIONS (8)
  - COUGH [None]
  - DYSPNOEA [None]
  - ERYTHEMA [None]
  - HEADACHE [None]
  - PALPITATIONS [None]
  - PRURITUS GENERALISED [None]
  - RASH [None]
  - RHINORRHOEA [None]
